FAERS Safety Report 5957967-X (Version None)
Quarter: 2008Q4

REPORT INFORMATION
  Report Type: 
  Country: None (occurrence: None)
  Receive Date: 20081119
  Receipt Date: 20081105
  Transmission Date: 20090506
  Serious: Yes (Other)
  Sender: FDA-Public Use
  Company Number: FR-AMGEN-UK310166

PATIENT
  Age: 75 Year
  Sex: Female

DRUGS (4)
  1. ROMIPLOSTIM [Suspect]
     Indication: IDIOPATHIC THROMBOCYTOPENIC PURPURA
     Route: 065
     Dates: start: 20080710, end: 20080710
  2. CORTICOSTEROID NOS [Concomitant]
  3. IMMUNE GLOBULIN NOS [Concomitant]
     Route: 065
  4. RITUXIMAB [Concomitant]
     Route: 065

REACTIONS (2)
  - DYSPEPSIA [None]
  - FATIGUE [None]
